FAERS Safety Report 4733498-X (Version None)
Quarter: 2005Q3

REPORT INFORMATION
  Report Type: 
  Country: None (occurrence: None)
  Receive Date: 20050803
  Receipt Date: 20050705
  Transmission Date: 20060218
  Serious: Yes (Hospitalization, Other)
  Sender: FDA-Public Use
  Company Number: LS-BRISTOL-MYERS SQUIBB COMPANY-13024963

PATIENT
  Age: 42 Year
  Sex: Female

DRUGS (4)
  1. STAVUDINE [Suspect]
     Indication: HIV INFECTION
     Route: 048
     Dates: start: 20050615, end: 20050624
  2. LAMIVUDINE [Suspect]
     Indication: HIV INFECTION
     Route: 048
     Dates: start: 20050615, end: 20050624
  3. NEVIRAPINE [Suspect]
     Indication: HIV INFECTION
     Route: 048
     Dates: start: 20050615, end: 20050624
  4. ACTRAPHANE [Concomitant]

REACTIONS (5)
  - DIABETES MELLITUS [None]
  - DISSEMINATED TUBERCULOSIS [None]
  - HYPERGLYCAEMIA [None]
  - MEDICATION ERROR [None]
  - OVERDOSE [None]
